FAERS Safety Report 7447920-1 (Version None)
Quarter: 2011Q2

REPORT INFORMATION
  Report Type: 
  Country: None (occurrence: None)
  Receive Date: 20110429
  Receipt Date: 20100318
  Transmission Date: 20111010
  Serious: No
  Sender: FDA-Public Use
  Company Number: US-ASTRAZENECA-2010SE04520

PATIENT
  Age: 67 Year
  Sex: Female

DRUGS (2)
  1. NEXIUM [Suspect]
     Route: 048
     Dates: start: 20080101
  2. PLAVIX [Interacting]
     Indication: STENT PLACEMENT
     Route: 048
     Dates: start: 20070101

REACTIONS (7)
  - MYALGIA [None]
  - INFLUENZA LIKE ILLNESS [None]
  - DRUG INTERACTION [None]
  - PELVIC PAIN [None]
  - PANCREATIC ENZYMES INCREASED [None]
  - CONTUSION [None]
  - THERAPEUTIC RESPONSE DECREASED [None]
